FAERS Safety Report 7219414-X (Version None)
Quarter: 2011Q1

REPORT INFORMATION
  Report Type: 
  Country: None (occurrence: None)
  Receive Date: 20110111
  Receipt Date: 20110107
  Transmission Date: 20110831
  Serious: Yes (Hospitalization, Other)
  Sender: FDA-Public Use
  Company Number: US-BAYER-2011-002777

PATIENT
  Sex: Male

DRUGS (3)
  1. VICODIN [Concomitant]
     Indication: PAIN
  2. NEXAVAR EDUCATION COMPAIGN IN US [Suspect]
     Indication: RENAL CELL CARCINOMA
     Dosage: 1 PILL
     Dates: start: 20101229
  3. ALL OTHER THERAPEUTIC PRODUCTS [Concomitant]
     Dosage: AT BEDTIME

REACTIONS (6)
  - PAIN OF SKIN [None]
  - ARTHRALGIA [None]
  - NERVOUSNESS [None]
  - HYPERAESTHESIA [None]
  - INSOMNIA [None]
  - DYSPNOEA [None]
